FAERS Safety Report 5064694-2 (Version None)
Quarter: 2006Q3

REPORT INFORMATION
  Report Type: 
  Country: None (occurrence: None)
  Receive Date: 20060728
  Receipt Date: 20060619
  Transmission Date: 20061208
  Serious: Yes (Hospitalization)
  Sender: FDA-Public Use
  Company Number: B06000091

PATIENT
  Age: 72 Year
  Sex: Male
  Weight: 90 kg

DRUGS (9)
  1. ALLOPURINOL [Suspect]
     Dosage: 100MG PER DAY
     Route: 048
     Dates: end: 20060509
  2. PAROXETINE HCL [Suspect]
     Dosage: 20MG PER DAY
     Route: 048
     Dates: end: 20060510
  3. FOZITEC [Suspect]
     Dosage: 10MG PER DAY
     Route: 048
     Dates: start: 20060224, end: 20060505
  4. AMIODARONE HCL [Suspect]
     Dosage: 200MG PER DAY
     Route: 048
     Dates: end: 20060510
  5. SIMVASTATIN [Suspect]
     Dosage: 20MG PER DAY
     Route: 048
     Dates: end: 20060510
  6. LASILIX [Suspect]
     Dosage: 500MG PER DAY
     Route: 048
     Dates: end: 20060428
  7. GABAPENTIN [Concomitant]
     Route: 048
  8. PERMIXON [Concomitant]
     Route: 065
  9. VIT B1 B6 [Concomitant]
     Route: 065

REACTIONS (19)
  - BACTERIAL INFECTION [None]
  - BLOOD CREATININE INCREASED [None]
  - BLOOD CULTURE POSITIVE [None]
  - DERMATITIS BULLOUS [None]
  - ENTEROCOCCAL INFECTION [None]
  - ERYTHROSIS [None]
  - ESCHERICHIA INFECTION [None]
  - HYPERNATRAEMIA [None]
  - INFLAMMATION [None]
  - LEUKOCYTOCLASTIC VASCULITIS [None]
  - LEUKOCYTOSIS [None]
  - OEDEMA [None]
  - PURPURA [None]
  - PYREXIA [None]
  - RASH PUSTULAR [None]
  - RENAL FAILURE [None]
  - SKIN NECROSIS [None]
  - STAPHYLOCOCCAL INFECTION [None]
  - STREPTOCOCCAL INFECTION [None]
